FAERS Safety Report 19206474 (Version 1)
Quarter: 2021Q2

REPORT INFORMATION
  Report Type: Spontaneous
  Country: US (occurrence: US)
  Receive Date: 20210501
  Receipt Date: 20210501
  Transmission Date: 20210717
  Serious: No
  Sender: FDA-Public Use
  Company Number: None

PATIENT
  Sex: Female
  Weight: 71.3 kg

DRUGS (2)
  1. CISPLATIN. [Suspect]
     Active Substance: CISPLATIN
     Dates: end: 20210408
  2. ALIMTA [Suspect]
     Active Substance: PEMETREXED DISODIUM
     Dates: end: 20210408

REACTIONS (5)
  - Fatigue [None]
  - Neutrophil count decreased [None]
  - Candida infection [None]
  - Orthostatic hypotension [None]
  - Hypotension [None]

NARRATIVE: CASE EVENT DATE: 20210426
